FAERS Safety Report 7367406-2 (Version None)
Quarter: 2011Q1

REPORT INFORMATION
  Report Type: 
  Country: None (occurrence: None)
  Receive Date: 20110322
  Receipt Date: 20110308
  Transmission Date: 20110831
  Serious: Yes (Other)
  Sender: FDA-Public Use
  Company Number: CA-GENENTECH-227738

PATIENT
  Sex: Male
  Weight: 88 kg

DRUGS (3)
  1. HYZAAR [Concomitant]
     Indication: PRODUCT USED FOR UNKNOWN INDICATION
     Dosage: UNK
     Dates: start: 20070524
  2. XOLAIR [Suspect]
     Indication: ASTHMA
     Dosage: 300 MG, 1/MONTH
     Route: 058
     Dates: start: 20060208
  3. XOLAIR [Suspect]
     Dosage: 300 MG, 1/MONTH
     Route: 058
     Dates: start: 20091216

REACTIONS (6)
  - PRODUCTIVE COUGH [None]
  - SPUTUM DISCOLOURED [None]
  - WHEEZING [None]
  - DYSPNOEA [None]
  - NASOPHARYNGITIS [None]
  - ASTHMA [None]
